FAERS Safety Report 5645147-7 (Version None)
Quarter: 2008Q1

REPORT INFORMATION
  Report Type: 
  Country: None (occurrence: None)
  Receive Date: 20080229
  Receipt Date: 20080226
  Transmission Date: 20080703
  Serious: Yes (Hospitalization)
  Sender: FDA-Public Use
  Company Number: BE-AVENTIS-200810943GDDC

PATIENT
  Age: 41 Year
  Sex: Male
  Weight: 66 kg

DRUGS (4)
  1. KETEK [Suspect]
     Indication: RESPIRATORY TRACT INFECTION
     Route: 048
     Dates: start: 20080101, end: 20080101
  2. NOVORAPID [Suspect]
     Indication: DIABETES MELLITUS
     Dosage: DOSE: 5+5+11
     Dates: end: 20080110
  3. LEVEMIR [Suspect]
     Indication: DIABETES MELLITUS
     Route: 058
  4. NOVORAPID [Concomitant]
     Dosage: DOSE: 5+5+9
     Route: 058
     Dates: start: 20080111

REACTIONS (2)
  - HYPOGLYCAEMIA [None]
  - HYPOGLYCAEMIC COMA [None]
